FAERS Safety Report 5217424-5 (Version None)
Quarter: 2007Q1

REPORT INFORMATION
  Report Type: 
  Country: None (occurrence: None)
  Receive Date: 20070124
  Receipt Date: 20060215
  Transmission Date: 20070707
  Serious: No
  Sender: FDA-Public Use
  Company Number: US-GLAXOSMITHKLINE-A0594425A

PATIENT
  Age: 45 Year
  Sex: Female

DRUGS (5)
  1. PAXIL [Suspect]
  2. PAXIL [Suspect]
     Route: 048
     Dates: start: 20051201
  3. XANAX [Concomitant]
  4. ALLERGY MEDICATION [Concomitant]
  5. STEROID NASAL SPRAY [Concomitant]

REACTIONS (3)
  - ANXIETY [None]
  - DRUG INEFFECTIVE [None]
  - SOMNOLENCE [None]
